FAERS Safety Report 4545508-3 (Version None)
Quarter: 2005Q1

REPORT INFORMATION
  Report Type: 
  Country: None (occurrence: None)
  Receive Date: 20050105
  Receipt Date: 20041006
  Transmission Date: 20050727
  Serious: Yes (Death, Hospitalization)
  Sender: FDA-Public Use
  Company Number: AU-MERCK-0410AUS00097

PATIENT
  Age: 86 Year
  Sex: Female

DRUGS (14)
  1. VIOXX [Suspect]
     Route: 048
  2. FUROSEMIDE [Concomitant]
     Route: 065
  3. ASPIRIN [Concomitant]
     Route: 065
  4. PIMECLONE HYDROCHLORIDE [Concomitant]
     Route: 065
  5. TIRATRICOL [Concomitant]
     Route: 065
  6. OLANZAPINE [Concomitant]
     Route: 065
  7. LEVOTHYROXINE SODIUM [Concomitant]
     Route: 065
  8. TEMAZEPAM [Concomitant]
     Route: 065
  9. AMITRIPTYLINE HYDROCHLORIDE [Concomitant]
     Route: 065
  10. ALENDRONATE SODIUM [Concomitant]
     Route: 048
  11. METOCLOPRAMIDE [Concomitant]
     Route: 065
  12. ACETAMINOPHEN [Concomitant]
     Route: 065
  13. RAMIPRIL [Concomitant]
     Route: 065
  14. VENLAFAXINE HYDROCHLORIDE [Concomitant]
     Route: 065

REACTIONS (7)
  - CARDIAC FAILURE [None]
  - CARDIAC FAILURE CONGESTIVE [None]
  - CEREBROVASCULAR ACCIDENT [None]
  - MYOCARDIAL ISCHAEMIA [None]
  - PANCREATIC NEOPLASM [None]
  - POST PROCEDURAL COMPLICATION [None]
  - VENTRICULAR DYSFUNCTION [None]
